FAERS Safety Report 7068888-6 (Version None)
Quarter: 2010Q4

REPORT INFORMATION
  Report Type: 
  Country: None (occurrence: None)
  Receive Date: 20101028
  Receipt Date: 20101020
  Transmission Date: 20110411
  Serious: Yes (Death)
  Sender: FDA-Public Use
  Company Number: JP-SANOFI-AVENTIS-2010SA034435

PATIENT
  Age: 63 Year
  Sex: Female
  Weight: 50 kg

DRUGS (8)
  1. PLAVIX [Suspect]
     Route: 048
     Dates: start: 20090511, end: 20090511
  2. PLAVIX [Suspect]
     Route: 048
     Dates: start: 20090512
  3. ASPIRIN [Concomitant]
     Route: 048
     Dates: start: 19960722
  4. PARIET [Concomitant]
     Route: 048
     Dates: start: 20070512
  5. DIART [Concomitant]
     Route: 048
     Dates: start: 20090517
  6. ALDACTONE [Concomitant]
     Route: 048
     Dates: start: 20090517
  7. RENIVACE [Concomitant]
     Route: 048
     Dates: start: 20070520
  8. ARTIST [Concomitant]
     Route: 048
     Dates: start: 20090526

REACTIONS (1)
  - SUDDEN DEATH [None]
